FAERS Safety Report 10514204 (Version 2)
Quarter: 2014Q4

REPORT INFORMATION
  Report Type: Spontaneous
  Country: JP (occurrence: JP)
  Receive Date: 20141013
  Receipt Date: 20141013
  Transmission Date: 20150528
  Serious: Yes (Other)
  Sender: FDA-Public Use
  Company Number: JP-EISAI MEDICAL RESEARCH-E2090-03457-SPO-JP

PATIENT
  Age: 72 Year
  Sex: Male

DRUGS (5)
  1. EXCEGRAN [Suspect]
     Active Substance: ZONISAMIDE
     Indication: EPILEPSY
     Route: 048
     Dates: start: 201101, end: 20140724
  2. AMLODIN OD [Concomitant]
     Active Substance: AMLODIPINE BESYLATE
     Indication: HYPERTENSION
     Dosage: 2.5 MG
     Route: 048
     Dates: start: 199611
  3. PANTOSIN [Concomitant]
     Active Substance: PANTETHINE
     Indication: HYPERLIPIDAEMIA
     Dosage: 600 MG
     Route: 048
     Dates: start: 199611
  4. MEVALOTIN [Concomitant]
     Active Substance: PRAVASTATIN SODIUM
     Indication: HYPERLIPIDAEMIA
     Dosage: 8.3 MG
     Route: 048
     Dates: start: 199611
  5. IMPROMEN [Concomitant]
     Active Substance: BROMPERIDOL
     Indication: SCHIZOPHRENIA
     Dosage: 3 MG
     Route: 048

REACTIONS (1)
  - Red blood cell count decreased [Recovering/Resolving]

NARRATIVE: CASE EVENT DATE: 20140620
